FAERS Safety Report 12240431 (Version 2)
Quarter: 2016Q2

REPORT INFORMATION
  Report Type: Report from Study
  Country: US (occurrence: US)
  Receive Date: 20160405
  Receipt Date: 20160502
  Transmission Date: 20160815
  Serious: Yes (Other)
  Sender: FDA-Public Use
  Company Number: US-BIOGEN-2016BI00213523

PATIENT
  Sex: Female

DRUGS (2)
  1. AVONEX [Suspect]
     Active Substance: INTERFERON BETA-1A
     Indication: MULTIPLE SCLEROSIS
     Route: 030
     Dates: start: 20060703
  2. FOLIC ACID. [Concomitant]
     Active Substance: FOLIC ACID
     Indication: PRODUCT USED FOR UNKNOWN INDICATION
     Route: 065

REACTIONS (26)
  - Obesity [Not Recovered/Not Resolved]
  - Pain in extremity [Not Recovered/Not Resolved]
  - Central nervous system lesion [Unknown]
  - Arthropathy [Unknown]
  - Paraesthesia [Unknown]
  - Trichophytosis [Recovered/Resolved]
  - Pallor [Recovered/Resolved]
  - Dry skin [Recovered/Resolved]
  - Fungal infection [Recovered/Resolved]
  - Influenza like illness [Recovered/Resolved]
  - Skin fissures [Recovered/Resolved]
  - Ligament sprain [Unknown]
  - Blindness unilateral [Recovered/Resolved]
  - Anxiety [Unknown]
  - Haemorrhage [Recovered/Resolved]
  - Seizure [Unknown]
  - Hypoaesthesia [Not Recovered/Not Resolved]
  - Urticaria [Unknown]
  - Muscular weakness [Not Recovered/Not Resolved]
  - Pain of skin [Not Recovered/Not Resolved]
  - Peroneal nerve palsy [Not Recovered/Not Resolved]
  - Epilepsy [Unknown]
  - Joint swelling [Unknown]
  - Musculoskeletal disorder [Not Recovered/Not Resolved]
  - Blood pressure abnormal [Not Recovered/Not Resolved]
  - Sensory disturbance [Not Recovered/Not Resolved]
